FAERS Safety Report 7289649-9 (Version None)
Quarter: 2011Q1

REPORT INFORMATION
  Report Type: 
  Country: None (occurrence: None)
  Receive Date: 20110214
  Receipt Date: 20110202
  Transmission Date: 20110831
  Serious: Yes (Hospitalization)
  Sender: FDA-Public Use
  Company Number: US-BIOGENIDEC-2009BI032318

PATIENT
  Age: 60 Year
  Sex: Female
  Weight: 65 kg

DRUGS (2)
  1. AVONEX [Suspect]
     Indication: MULTIPLE SCLEROSIS
     Route: 030
     Dates: start: 20030801
  2. AVONEX [Suspect]
     Route: 030
     Dates: start: 20011101, end: 20030701

REACTIONS (13)
  - PAIN IN EXTREMITY [None]
  - COLON CANCER METASTATIC [None]
  - NAUSEA [None]
  - REFLUX OESOPHAGITIS [None]
  - GASTRIC ULCER [None]
  - GASTRITIS [None]
  - ULTRASOUND SCAN [None]
  - WEIGHT INCREASED [None]
  - VOMITING [None]
  - RECTAL POLYP [None]
  - HIATUS HERNIA [None]
  - OESOPHAGITIS ULCERATIVE [None]
  - POSITRON EMISSION TOMOGRAM [None]
